FAERS Safety Report 4449424-7 (Version None)
Quarter: 2004Q3

REPORT INFORMATION
  Report Type: 
  Country: None (occurrence: None)
  Receive Date: 20040914
  Receipt Date: 20040616
  Transmission Date: 20050211
  Serious: Yes (Other)
  Sender: FDA-Public Use
  Company Number: 2004-06721

PATIENT
  Age: 52 Year
  Sex: Male
  Weight: 70 kg

DRUGS (3)
  1. TENOFOVIR DF (TENOFOVIR DISOPROXYL FUMARATE) [Suspect]
     Indication: HIV INFECTION
     Dosage: 300 MG, 1 IN 1 D, ORAL
     Route: 048
     Dates: start: 20031030
  2. COMBIVIR [Concomitant]
  3. NEVIRAPINE (NEVIRAPINE) [Concomitant]

REACTIONS (4)
  - CENTRAL NERVOUS SYSTEM LESION [None]
  - DEAFNESS NEUROSENSORY [None]
  - HEARING IMPAIRED [None]
  - TINNITUS [None]
